FAERS Safety Report 9969612 (Version 1)
Quarter: 2014Q1

REPORT INFORMATION
  Report Type: Spontaneous
  Country: US (occurrence: None)
  Receive Date: 20140304
  Receipt Date: 20140304
  Transmission Date: 20141002
  Serious: Yes (Hospitalization, Other)
  Sender: FDA-Public Use
  Company Number: None

PATIENT
  Age: 15 Year
  Sex: Female

DRUGS (3)
  1. LOESTRIN FE 1.5/30 [Suspect]
     Indication: MENORRHAGIA
     Dosage: 1 TAB, QD, ORAL
     Route: 048
     Dates: start: 20140116, end: 20140202
  2. NAPROXEN [Concomitant]
  3. VITAMIN D3 [Concomitant]

REACTIONS (1)
  - Pulmonary embolism [None]
